FAERS Safety Report 7002679-7 (Version None)
Quarter: 2010Q3

REPORT INFORMATION
  Report Type: 
  Country: None (occurrence: None)
  Receive Date: 20100920
  Receipt Date: 20070723
  Transmission Date: 20110219
  Serious: Yes (Other)
  Sender: FDA-Public Use
  Company Number: US-ASTRAZENECA-2006UW08503

PATIENT
  Age: 17201 Day
  Sex: Male
  Weight: 103.4 kg

DRUGS (3)
  1. SEROQUEL [Suspect]
     Indication: BIPOLAR DISORDER
     Route: 048
     Dates: start: 20000101, end: 20060101
  2. SEROQUEL [Suspect]
     Dosage: 200 - 300 MG
     Route: 048
     Dates: start: 20021221, end: 20060617
  3. NEURONTIN [Concomitant]
     Route: 048
     Dates: start: 20021221

REACTIONS (2)
  - DIABETES MELLITUS [None]
  - TYPE 2 DIABETES MELLITUS [None]
